FAERS Safety Report 25400648 (Version 5)
Quarter: 2025Q3

REPORT INFORMATION
  Report Type: Report from Study
  Country: US (occurrence: US)
  Receive Date: 20250605
  Receipt Date: 20250917
  Transmission Date: 20251021
  Serious: Yes (Other)
  Sender: NOVARTIS
  Company Number: US-002147023-NVSC2025US084334

PATIENT
  Sex: Female

DRUGS (1)
  1. COSENTYX [Suspect]
     Active Substance: SECUKINUMAB
     Indication: Hidradenitis
     Route: 065

REACTIONS (6)
  - Autoimmune disorder [Unknown]
  - Cyst [Unknown]
  - Condition aggravated [Not Recovered/Not Resolved]
  - Scar [Unknown]
  - Product dose omission issue [Unknown]
  - Skin odour abnormal [Unknown]
